FAERS Safety Report 8119274-9 (Version None)
Quarter: 2012Q1

REPORT INFORMATION
  Report Type: 
  Country: None (occurrence: None)
  Receive Date: 20120207
  Receipt Date: 20120125
  Transmission Date: 20120608
  Serious: Yes (Other)
  Sender: FDA-Public Use
  Company Number: US-ELI_LILLY_AND_COMPANY-US201201008746

PATIENT
  Age: 69 Year
  Sex: Female

DRUGS (2)
  1. FORTEO [Suspect]
     Dosage: UNK
     Dates: start: 20040101, end: 20040101
  2. CYMBALTA [Suspect]
     Indication: OSTEOARTHRITIS
     Dosage: 30 MG, TID
     Dates: start: 20050101

REACTIONS (10)
  - POSTOPERATIVE WOUND INFECTION [None]
  - COMPRESSION FRACTURE [None]
  - VISUAL ACUITY REDUCED [None]
  - MOUTH ULCERATION [None]
  - CORNEAL SCAR [None]
  - DRUG INEFFECTIVE [None]
  - DRY EYE [None]
  - ULCERATIVE KERATITIS [None]
  - HIP FRACTURE [None]
  - SJOGREN'S SYNDROME [None]
